FAERS Safety Report 8789289 (Version 1)
Quarter: 2012Q4

REPORT INFORMATION
  Report Type: Spontaneous
  Country: US (occurrence: None)
  Receive Date: 20120904
  Receipt Date: 20120904
  Transmission Date: 20130627
  Serious: Yes (Hospitalization)
  Sender: FDA-Public Use
  Company Number: B0826407A

PATIENT
  Age: 31 Year
  Sex: Male

DRUGS (3)
  1. ATOVAQUONE [Suspect]
     Indication: ANTIFUNGAL PROPHYLAXIS
  2. DAPSONE [Concomitant]
  3. METHYLENE BLUE [Concomitant]

REACTIONS (3)
  - Methaemoglobinaemia [None]
  - Nausea [None]
  - Disease recurrence [None]
